FAERS Safety Report 23794347 (Version 1)
Quarter: 2024Q2

REPORT INFORMATION
  Report Type: Spontaneous
  Country: US (occurrence: US)
  Receive Date: 20240429
  Receipt Date: 20240429
  Transmission Date: 20240715
  Serious: No
  Sender: FDA-Public Use
  Company Number: US-AVEVA-000620

PATIENT
  Sex: Female

DRUGS (1)
  1. NICOTINE [Suspect]
     Active Substance: NICOTINE
     Indication: Product used for unknown indication
     Dosage: 21 MILLIGRAM/DAY
     Route: 062

REACTIONS (4)
  - Nausea [Unknown]
  - Headache [Unknown]
  - Heat illness [Unknown]
  - Erythema [Unknown]
